FAERS Safety Report 24823296 (Version 3)
Quarter: 2025Q1

REPORT INFORMATION
  Report Type: Report from Study
  Country: HU (occurrence: HU)
  Receive Date: 20250109
  Receipt Date: 20250116
  Transmission Date: 20250409
  Serious: Yes (Death, Life-Threatening, Other)
  Sender: BIOVITRUM
  Company Number: HU-AstraZeneca-CH-00762829A

PATIENT
  Age: 12 Week
  Sex: Male

DRUGS (1)
  1. PALIVIZUMAB [Suspect]
     Active Substance: PALIVIZUMAB
     Indication: Respiratory syncytial virus immunisation
     Route: 030
     Dates: start: 20241108

REACTIONS (5)
  - Pneumonia [Fatal]
  - Renal failure [Unknown]
  - Condition aggravated [Fatal]
  - Respiratory arrest [Fatal]
  - Pulmonary haemorrhage [Unknown]

NARRATIVE: CASE EVENT DATE: 20241126
